FAERS Safety Report 4955572-5 (Version None)
Quarter: 2006Q1

REPORT INFORMATION
  Report Type: 
  Country: None (occurrence: None)
  Receive Date: 20060328
  Receipt Date: 20051215
  Transmission Date: 20060701
  Serious: Yes (Hospitalization)
  Sender: FDA-Public Use
  Company Number: US-MERCK-0512USA02541

PATIENT
  Age: 61 Year
  Sex: Female
  Weight: 85 kg

DRUGS (25)
  1. VIOXX [Suspect]
     Indication: ARTHRALGIA
     Route: 048
     Dates: start: 20010101, end: 20040930
  2. PROPOXYPHENE HYDROCHLORIDE [Concomitant]
     Route: 065
     Dates: start: 19980101, end: 20030101
  3. PREMARIN [Concomitant]
     Route: 065
     Dates: start: 19990601, end: 20010301
  4. MEDROXYPROGESTERONE ACETATE [Concomitant]
     Route: 065
     Dates: start: 19991201, end: 20010301
  5. CELEBREX [Concomitant]
     Indication: OSTEOARTHRITIS
     Route: 065
     Dates: start: 19990301, end: 20010101
  6. INDOMETHACIN [Concomitant]
     Indication: OSTEOARTHRITIS
     Route: 065
     Dates: start: 19980101, end: 20040601
  7. EFFEXOR [Concomitant]
     Route: 065
  8. PROMETHAZINE [Concomitant]
     Route: 065
  9. AMBIEN [Concomitant]
     Route: 065
  10. ZYRTEC [Concomitant]
     Route: 065
  11. BUSPIRONE HYDROCHLORIDE [Concomitant]
     Route: 065
  12. FEMHRT [Concomitant]
     Route: 065
  13. PAXIL [Concomitant]
     Route: 065
  14. WELLBUTRIN [Concomitant]
     Route: 065
  15. AVELOX [Concomitant]
     Route: 065
  16. PENICILLIN (UNSPECIFIED) [Concomitant]
     Route: 065
  17. AMITRIPTYLIN [Concomitant]
     Route: 065
  18. CYANOCOBALAMIN [Concomitant]
     Route: 065
  19. METOCLOPRAMIDE [Concomitant]
     Route: 065
  20. TOPAMAX [Concomitant]
     Route: 065
  21. ZITHROMAX [Concomitant]
     Route: 065
  22. LIDOCAINE [Concomitant]
     Route: 065
  23. PROTONIX [Concomitant]
     Route: 065
  24. ALTACE [Concomitant]
     Route: 065
  25. RELPAX [Concomitant]
     Route: 065

REACTIONS (7)
  - BIPOLAR DISORDER [None]
  - BLOOD CHOLESTEROL INCREASED [None]
  - DEPRESSION [None]
  - DYSPEPSIA [None]
  - FATIGUE [None]
  - HYPERTENSION [None]
  - TRANSIENT ISCHAEMIC ATTACK [None]
